FAERS Safety Report 9614600 (Version 1)
Quarter: 2013Q4

REPORT INFORMATION
  Report Type: Spontaneous
  Country: SE (occurrence: SE)
  Receive Date: 20131011
  Receipt Date: 20131011
  Transmission Date: 20140711
  Serious: Yes (Hospitalization)
  Sender: FDA-Public Use
  Company Number: SE-ASTRAZENECA-2013SE73766

PATIENT
  Age: 93 Year
  Sex: Male

DRUGS (3)
  1. METOPROLOL [Suspect]
     Route: 065
  2. CANDESARTAN (ACTAVIS) [Suspect]
     Route: 065
  3. DIGOXIN [Suspect]
     Route: 065

REACTIONS (2)
  - Hyponatraemia [Unknown]
  - Bradycardia [Unknown]
